FAERS Safety Report 25005230 (Version 1)
Quarter: 2025Q1

REPORT INFORMATION
  Report Type: Spontaneous
  Country: IT (occurrence: IT)
  Receive Date: 20250224
  Receipt Date: 20250224
  Transmission Date: 20250408
  Serious: Yes (Other)
  Sender: NOVARTIS
  Company Number: IT-002147023-NVSC2025IT028053

PATIENT
  Age: 39 Year
  Sex: Male

DRUGS (1)
  1. KESIMPTA [Suspect]
     Active Substance: OFATUMUMAB
     Indication: Multiple sclerosis
     Dosage: 20 MG, QMO (0.4 ML (50 MG/ML)) (SOLUTION FOR INJECTION, PREFILLED SYRINGE)
     Route: 058
     Dates: start: 202303

REACTIONS (3)
  - Prostatitis [Unknown]
  - Hepatitis B antibody positive [Unknown]
  - Transaminases increased [Unknown]
